FAERS Safety Report 23184769 (Version 1)
Quarter: 2023Q4

REPORT INFORMATION
  Report Type: Spontaneous
  Country: GB (occurrence: GB)
  Receive Date: 20231115
  Receipt Date: 20231115
  Transmission Date: 20240110
  Serious: Yes (Other)
  Sender: FDA-Public Use
  Company Number: GB-CELLTRION INC.-2023GB021810

PATIENT

DRUGS (1)
  1. INFLIXIMAB [Suspect]
     Active Substance: INFLIXIMAB
     Indication: Crohn^s disease
     Dosage: 350 MG 8 WEEKLY, REMSIMA 1 MG BAXTER
     Route: 042

REACTIONS (2)
  - Lung neoplasm malignant [Unknown]
  - Malaise [Unknown]
